FAERS Safety Report 12686738 (Version 1)
Quarter: 2016Q3

REPORT INFORMATION
  Report Type: Spontaneous
  Country: US (occurrence: US)
  Receive Date: 20160825
  Receipt Date: 20160825
  Transmission Date: 20161109
  Serious: No
  Sender: FDA-Public Use
  Company Number: US-NOVOPROD-466640

PATIENT
  Sex: Female

DRUGS (2)
  1. JANUVIA [Suspect]
     Active Substance: SITAGLIPTIN PHOSPHATE
     Indication: PRODUCT USED FOR UNKNOWN INDICATION
     Route: 048
  2. VICTOZA [Suspect]
     Active Substance: LIRAGLUTIDE
     Indication: GLUCOSE TOLERANCE IMPAIRED
     Route: 058

REACTIONS (15)
  - Feeling of relaxation [Unknown]
  - Nausea [Unknown]
  - Insomnia [Unknown]
  - Head discomfort [Unknown]
  - Off label use [Unknown]
  - Eye pain [Unknown]
  - Glycosylated haemoglobin increased [Unknown]
  - Hypoaesthesia [Unknown]
  - Incorrect dose administered [Unknown]
  - Dehydration [Unknown]
  - Sedation [Unknown]
  - Dry skin [Unknown]
  - Urinary incontinence [Unknown]
  - Constipation [Unknown]
  - Headache [Unknown]
